FAERS Safety Report 5371836-8 (Version None)
Quarter: 2007Q2

REPORT INFORMATION
  Report Type: 
  Country: None (occurrence: None)
  Receive Date: 20070619
  Receipt Date: 20070320
  Transmission Date: 20071010
  Serious: No
  Sender: FDA-Public Use
  Company Number: 2007US000660

PATIENT
  Age: 55 Year
  Sex: Male

DRUGS (4)
  1. VESICARE [Suspect]
     Indication: POLLAKIURIA
     Dosage: SEE IMAGE
     Route: 048
  2. VESICARE [Suspect]
     Indication: POLLAKIURIA
     Dosage: SEE IMAGE
     Route: 048
  3. CADUET (AMLODIPINE BESILATE, ATORVASTATIN CALCIUM) [Concomitant]
  4. PREVACID [Concomitant]

REACTIONS (2)
  - DRUG INEFFECTIVE [None]
  - MICTURITION URGENCY [None]
